FAERS Safety Report 5520789-8 (Version None)
Quarter: 2007Q4

REPORT INFORMATION
  Report Type: 
  Country: None (occurrence: None)
  Receive Date: 20071119
  Receipt Date: 20071106
  Transmission Date: 20080405
  Serious: Yes (Other)
  Sender: FDA-Public Use
  Company Number: US-PFIZER INC-2007094999

PATIENT
  Sex: Female
  Weight: 77.1 kg

DRUGS (4)
  1. CHANTIX [Suspect]
     Indication: SMOKING CESSATION THERAPY
     Route: 048
     Dates: start: 20070901, end: 20071001
  2. INSULIN [Concomitant]
     Indication: DIABETES MELLITUS
  3. GLUCOPHAGE [Concomitant]
  4. MONTELUKAST SODIUM [Concomitant]

REACTIONS (3)
  - DEPRESSION [None]
  - NASOPHARYNGITIS [None]
  - SHOULDER OPERATION [None]
